FAERS Safety Report 23305505 (Version 2)
Quarter: 2024Q3

REPORT INFORMATION
  Report Type: Report from Study
  Country: US (occurrence: US)
  Receive Date: 20231218
  Receipt Date: 20240913
  Transmission Date: 20241017
  Serious: Yes (Other)
  Sender: NOVARTIS
  Company Number: US-002147023-NVSC2023US264795

PATIENT
  Sex: Female

DRUGS (1)
  1. COSENTYX [Suspect]
     Active Substance: SECUKINUMAB
     Indication: Psoriasis
     Dosage: 300 MG, QMO
     Route: 058

REACTIONS (7)
  - Psoriatic arthropathy [Unknown]
  - Therapeutic product effect incomplete [Unknown]
  - Pustular psoriasis [Unknown]
  - Condition aggravated [Unknown]
  - Pain [Unknown]
  - Skin fissures [Unknown]
  - Inappropriate schedule of product administration [Unknown]
